FAERS Safety Report 7300072-0 (Version None)
Quarter: 2011Q1

REPORT INFORMATION
  Report Type: 
  Country: None (occurrence: None)
  Receive Date: 20110208
  Receipt Date: 20110202
  Transmission Date: 20110831
  Serious: Yes (Other)
  Sender: FDA-Public Use
  Company Number: A0910688A

PATIENT
  Sex: Male

DRUGS (1)
  1. BENZOYL PEROXIDE + SALICYLIC ACID (BENZOYL PEROXIDE + SALICY) (FORMULA [Suspect]
     Indication: PRODUCT USED FOR UNKNOWN INDICATION
     Dosage: TOPICAL
     Route: 061
     Dates: start: 20101215

REACTIONS (4)
  - ASTHMA [None]
  - ACNE [None]
  - HYPERSENSITIVITY [None]
  - DRUG INEFFECTIVE [None]
